FAERS Safety Report 8688383 (Version 3)
Quarter: 2012Q4

REPORT INFORMATION
  Report Type: 
  Country: AU (occurrence: AU)
  Receive Date: 20120727
  Receipt Date: 20121102
  Transmission Date: 20130627
  Serious: Yes (Death)
  Sender: FDA-Public Use
  Company Number: AU-B.I. PHARMACEUTICALS,INC./RIDGEFIELD-2012-AU-01295AU

PATIENT
  Age: 81 None
  Sex: Male
  Weight: 82 kg

DRUGS (3)
  1. PRADAXA [Suspect]
     Indication: CEREBROVASCULAR ACCIDENT PROPHYLAXIS
     Dosage: 300 mg
     Dates: start: 20110712
  2. PRADAXA [Suspect]
     Indication: ATRIAL FIBRILLATION
  3. SOMAC [Concomitant]

REACTIONS (4)
  - Death [Fatal]
  - Periorbital haematoma [Unknown]
  - Physical assault [Unknown]
  - Fall [Unknown]
